FAERS Safety Report 8555219-5 (Version None)
Quarter: 2012Q3

REPORT INFORMATION
  Report Type: 
  Country: None (occurrence: None)
  Receive Date: 20120731
  Receipt Date: 20110831
  Transmission Date: 20120928
  Serious: No
  Sender: FDA-Public Use
  Company Number: US-ASTRAZENECA-2011SE42061

PATIENT
  Age: 61 Year
  Sex: Female
  Weight: 59 kg

DRUGS (8)
  1. SEROQUEL [Suspect]
     Indication: SLEEP DISORDER
     Route: 048
  2. NEXIUM [Suspect]
     Indication: GASTROOESOPHAGEAL REFLUX DISEASE
     Route: 048
  3. CRESTOR [Suspect]
     Indication: LIPIDS INCREASED
     Route: 048
  4. ZANTAX [Concomitant]
  5. BACLOFEN [Concomitant]
  6. TRAZODONE HCL [Concomitant]
  7. TOPIRAMATE [Concomitant]
     Indication: HEADACHE
  8. XANAX [Concomitant]

REACTIONS (3)
  - GINGIVAL SWELLING [None]
  - OFF LABEL USE [None]
  - DRY MOUTH [None]
